FAERS Safety Report 17204732 (Version 3)
Quarter: 2020Q3

REPORT INFORMATION
  Report Type: Report from Study
  Country: ES (occurrence: ES)
  Receive Date: 20191226
  Receipt Date: 20200806
  Transmission Date: 20201104
  Serious: Yes (Hospitalization)
  Sender: FDA-Public Use
  Company Number: ES-ALEXION PHARMACEUTICALS INC.-A201915424

PATIENT
  Age: 50 Year
  Sex: Male
  Weight: 94 kg

DRUGS (23)
  1. PREDNISONA [Concomitant]
     Active Substance: PREDNISONE
     Indication: PROPHYLAXIS
     Dosage: 5 MG, QD
     Route: 048
     Dates: start: 20180119, end: 20191001
  2. RAVULIZUMAB. [Suspect]
     Active Substance: RAVULIZUMAB
     Dosage: 3300 MG, EVERY 45 DAYS
     Route: 042
     Dates: start: 20190819
  3. ALOPURINOL [Concomitant]
     Active Substance: ALLOPURINOL
     Indication: HYPERURICAEMIA
     Dosage: 50 MG, QD
     Route: 048
     Dates: start: 20190212, end: 20191126
  4. AMLODIPINO                         /00972401/ [Concomitant]
     Active Substance: AMLODIPINE BESYLATE
     Indication: MALIGNANT HYPERTENSION
     Dosage: 10 MG, QD
     Route: 048
     Dates: start: 20190212
  5. PARICALCITOL. [Concomitant]
     Active Substance: PARICALCITOL
     Dosage: 1 ?G, TIW
     Route: 048
     Dates: start: 20191004
  6. EZETIMIBA [Concomitant]
     Active Substance: EZETIMIBE
     Indication: DYSLIPIDAEMIA
     Dosage: 10 MG, QD
     Route: 048
     Dates: start: 20190212, end: 20191001
  7. EPLERENONA [Concomitant]
     Active Substance: EPLERENONE
     Dosage: 25 MG, QD
     Route: 048
     Dates: start: 20191004
  8. PROGRAF [Concomitant]
     Active Substance: TACROLIMUS
     Dosage: 1.5 MG, QD (MORNING)
     Route: 048
     Dates: start: 20180717
  9. ATORVASTATINA [Concomitant]
     Active Substance: ATORVASTATIN
     Indication: DYSLIPIDAEMIA
     Dosage: 40 MG, QD
     Route: 048
     Dates: start: 20180214
  10. EPLERENONA [Concomitant]
     Active Substance: EPLERENONE
     Indication: HYPERTENSION
     Dosage: 25 MG, QD
     Route: 048
     Dates: start: 20190822, end: 20191001
  11. DOXAZOSIN [Concomitant]
     Active Substance: DOXAZOSIN MESYLATE
     Indication: MALIGNANT HYPERTENSION
     Dosage: 4 MG, QD
     Route: 048
  12. ENALAPRIL [Concomitant]
     Active Substance: ENALAPRIL
     Indication: MALIGNANT HYPERTENSION
     Dosage: 20 MG, QD
     Route: 048
     Dates: start: 20180412
  13. HIDROFEROL [Concomitant]
     Active Substance: CALCIFEDIOL
     Indication: VITAMIN D DEFICIENCY
     Dosage: 0.266 MG, QMONTH
     Route: 048
     Dates: start: 20180213
  14. MICOFENOLATO DE MOFETILA [Concomitant]
     Active Substance: MYCOPHENOLATE MOFETIL
     Indication: PROPHYLAXIS
     Dosage: 500 MG, BID
     Route: 048
     Dates: start: 20171130
  15. RAVULIZUMAB. [Suspect]
     Active Substance: RAVULIZUMAB
     Indication: ATYPICAL HAEMOLYTIC URAEMIC SYNDROME
     Dosage: 2700 MG, Q2W
     Route: 042
     Dates: start: 20171121
  16. IRBESARTAN. [Concomitant]
     Active Substance: IRBESARTAN
     Indication: MALIGNANT HYPERTENSION
     Dosage: 150 MG, BID
     Route: 048
     Dates: start: 20190212, end: 20191001
  17. EZETIMIBA [Concomitant]
     Active Substance: EZETIMIBE
     Dosage: 10 UNK, UNK
     Route: 048
     Dates: start: 20191004
  18. RAVULIZUMAB. [Suspect]
     Active Substance: RAVULIZUMAB
     Dosage: 3300 MG, UNK
     Route: 042
     Dates: start: 20200331
  19. IRBESARTAN. [Concomitant]
     Active Substance: IRBESARTAN
     Dosage: 150 MG, BID
     Route: 048
     Dates: start: 20191004
  20. BISOPROLOL [Concomitant]
     Active Substance: BISOPROLOL
     Indication: MALIGNANT HYPERTENSION
     Dosage: 5 MG, QD
     Route: 048
     Dates: start: 20171103
  21. PARICALCITOL. [Concomitant]
     Active Substance: PARICALCITOL
     Indication: HYPERPARATHYROIDISM SECONDARY
     Dosage: 1 ?G, TID
     Route: 048
     Dates: start: 20180412, end: 20191001
  22. PROGRAF [Concomitant]
     Active Substance: TACROLIMUS
     Indication: PROPHYLAXIS
     Dosage: 2 MG, QHS
     Route: 048
     Dates: start: 20180502
  23. FENOXIMETILPENICILINA              /00001802/ [Concomitant]
     Indication: INFECTION PROPHYLAXIS
     Dosage: 250 MG, BID
     Route: 048
     Dates: start: 20171122

REACTIONS (1)
  - Biopsy kidney [Recovered/Resolved]

NARRATIVE: CASE EVENT DATE: 20191001
